FAERS Safety Report 15597283 (Version 2)
Quarter: 2018Q4

REPORT INFORMATION
  Report Type: Spontaneous
  Country: JP (occurrence: JP)
  Receive Date: 20181108
  Receipt Date: 20181108
  Transmission Date: 20190205
  Serious: Yes (Other)
  Sender: FDA-Public Use
  Company Number: PHHY2018JP146032

PATIENT
  Age: 14 Year
  Sex: Female
  Weight: 46.7 kg

DRUGS (2)
  1. PREDNISOLONE. [Suspect]
     Active Substance: PREDNISOLONE
     Indication: ANAEMIA
  2. PREDNISOLONE. [Suspect]
     Active Substance: PREDNISOLONE
     Indication: HYPOPROTEINAEMIA
     Dosage: 40 MG, QD
     Route: 065

REACTIONS (3)
  - Treatment failure [Unknown]
  - Gastritis haemorrhagic [Unknown]
  - Product use in unapproved indication [Unknown]
